FAERS Safety Report 7671035-0 (Version None)
Quarter: 2011Q3

REPORT INFORMATION
  Report Type: 
  Country: None (occurrence: None)
  Receive Date: 20110803
  Receipt Date: 20110719
  Transmission Date: 20111222
  Serious: Yes (Other)
  Sender: FDA-Public Use
  Company Number: 2011MA009076

PATIENT
  Age: 69 Year
  Sex: Female

DRUGS (3)
  1. SULFATRIM [Suspect]
     Indication: PNEUMOCYSTIS JIROVECI PNEUMONIA
     Dosage: 2040 MG;QID;PO
     Route: 048
  2. SIROLIMUS [Concomitant]
  3. MYCOPHENOLATE MOFETIL [Concomitant]

REACTIONS (6)
  - RESTLESSNESS [None]
  - ACUTE PSYCHOSIS [None]
  - PARANOIA [None]
  - MUSCLE TWITCHING [None]
  - SPEECH DISORDER [None]
  - CONFUSIONAL STATE [None]
